FAERS Safety Report 25323651 (Version 1)
Quarter: 2025Q2

REPORT INFORMATION
  Report Type: Report from Study
  Country: US (occurrence: US)
  Receive Date: 20250516
  Receipt Date: 20250516
  Transmission Date: 20250716
  Serious: Yes (Death, Other)
  Sender: GILEAD
  Company Number: US-GILEAD-2025-0713692

PATIENT
  Sex: Female

DRUGS (3)
  1. AMBRISENTAN [Suspect]
     Active Substance: AMBRISENTAN
     Indication: Pulmonary arterial hypertension
     Dosage: 5 MG, BID
     Route: 048
     Dates: start: 201904
  2. ARCALYST [Suspect]
     Active Substance: RILONACEPT
     Indication: Pericardial effusion
     Dosage: 2ML UNDER THE SKIN EVERY WEEK
     Route: 058
     Dates: start: 202405
  3. ADCIRCA [Concomitant]
     Active Substance: TADALAFIL
     Indication: Pulmonary arterial hypertension

REACTIONS (2)
  - Death [Fatal]
  - Product use issue [Not Recovered/Not Resolved]
